FAERS Safety Report 5428576-6 (Version None)
Quarter: 2007Q3

REPORT INFORMATION
  Report Type: 
  Country: None (occurrence: None)
  Receive Date: 20070731
  Receipt Date: 20070425
  Transmission Date: 20080115
  Serious: No
  Sender: FDA-Public Use
  Company Number: US200704001985

PATIENT
  Age: 81 Year
  Sex: Male

DRUGS (14)
  1. BYETTA [Suspect]
     Indication: TYPE 2 DIABETES MELLITUS
     Dosage: 10 UG, 2/D, SUBCUTANEOUS
     Route: 058
     Dates: start: 20050601
  2. LASIX [Concomitant]
  3. CLONIDINE [Concomitant]
  4. ASPIRIN [Concomitant]
  5. GLUCOTROL XL [Concomitant]
  6. CENTRUM SILVER [Concomitant]
  7. ZETIA [Concomitant]
  8. LIPITOR [Concomitant]
  9. METFORMIN HCL [Concomitant]
  10. TRICOR [Concomitant]
  11. ACTOS [Concomitant]
  12. NOVOLOG [Concomitant]
  13. LANTUS [Concomitant]
  14. NIACINAMIDE [Concomitant]

REACTIONS (2)
  - BLOOD GLUCOSE FLUCTUATION [None]
  - PEMPHIGOID [None]
